FAERS Safety Report 5619004-6 (Version None)
Quarter: 2008Q1

REPORT INFORMATION
  Report Type: 
  Country: None (occurrence: None)
  Receive Date: 20080207
  Receipt Date: 20080118
  Transmission Date: 20080703
  Serious: No
  Sender: FDA-Public Use
  Company Number: US-BOEHRINGER INGELHEIM GMBH, GERMANY-2007-BP-26667BP

PATIENT
  Sex: Female
  Weight: 62 kg

DRUGS (1)
  1. SPIRIVA [Suspect]
     Indication: BRONCHIECTASIS
     Route: 055
     Dates: start: 20061108, end: 20061126

REACTIONS (2)
  - RASH [None]
  - URTICARIA [None]
